FAERS Safety Report 6806765-3 (Version None)
Quarter: 2010Q2

REPORT INFORMATION
  Report Type: 
  Country: None (occurrence: None)
  Receive Date: 20100629
  Receipt Date: 20080711
  Transmission Date: 20101027
  Serious: Yes (Other)
  Sender: FDA-Public Use
  Company Number: US-PFIZER INC-2008027497

PATIENT
  Sex: Male
  Weight: 68 kg

DRUGS (1)
  1. MEDROL [Suspect]
     Indication: INJURY
     Route: 048

REACTIONS (6)
  - ERYTHEMA [None]
  - FLUSHING [None]
  - HYPERTENSION [None]
  - INSOMNIA [None]
  - MOOD SWINGS [None]
  - RASH [None]
